FAERS Safety Report 19520193 (Version 1)
Quarter: 2021Q3

REPORT INFORMATION
  Report Type: Spontaneous
  Country: US (occurrence: US)
  Receive Date: 20210712
  Receipt Date: 20210712
  Transmission Date: 20211014
  Serious: Yes (Other)
  Sender: FDA-Public Use
  Company Number: US-HIKMA PHARMACEUTICALS USA INC.-US-H14001-21-03155

PATIENT
  Age: 52 Year
  Sex: Female

DRUGS (2)
  1. PHENERGAN [Suspect]
     Active Substance: PROMETHAZINE HYDROCHLORIDE
     Indication: PROCEDURAL PAIN
     Dosage: UNKNOWN
     Route: 030
  2. DEMEROL [Suspect]
     Active Substance: MEPERIDINE HYDROCHLORIDE
     Indication: PROCEDURAL PAIN
     Dosage: UNKNOWN
     Route: 030

REACTIONS (1)
  - Embolia cutis medicamentosa [Recovering/Resolving]
